FAERS Safety Report 5306315-7 (Version None)
Quarter: 2007Q2

REPORT INFORMATION
  Report Type: 
  Country: None (occurrence: None)
  Receive Date: 20070424
  Receipt Date: 20070328
  Transmission Date: 20071010
  Serious: Yes (Hospitalization)
  Sender: FDA-Public Use
  Company Number: US-AMGEN-KDL212958

PATIENT
  Sex: Female
  Weight: 65.4 kg

DRUGS (3)
  1. NEULASTA [Suspect]
     Indication: CHEMOTHERAPY
     Route: 058
     Dates: start: 20050901, end: 20051202
  2. CYTOXAN [Concomitant]
     Dates: start: 20050901, end: 20051112
  3. TAXOL [Concomitant]
     Dates: start: 20051118, end: 20051202

REACTIONS (4)
  - MUSCULAR WEAKNESS [None]
  - PSEUDOMONAL BACTERAEMIA [None]
  - SOFT TISSUE DISORDER [None]
  - STAPHYLOCOCCAL SEPSIS [None]
